FAERS Safety Report 20003568 (Version 1)
Quarter: 2021Q4

REPORT INFORMATION
  Report Type: Spontaneous
  Country: US (occurrence: US)
  Receive Date: 20211028
  Receipt Date: 20211028
  Transmission Date: 20220304
  Serious: Yes (Hospitalization)
  Sender: FDA-Public Use
  Company Number: US-UNICHEM PHARMACEUTICALS (USA) INC-UCM202110-000977

PATIENT
  Age: 18 Year
  Sex: Male

DRUGS (3)
  1. DIVALPROEX SODIUM [Suspect]
     Active Substance: DIVALPROEX SODIUM
     Indication: Bipolar disorder
     Dosage: UNKNOWN
  2. QUETIAPINE [Concomitant]
     Active Substance: QUETIAPINE
     Indication: Bipolar disorder
     Dosage: UNKNOWN
  3. CLONAZEPAM [Concomitant]
     Active Substance: CLONAZEPAM
     Indication: Bipolar disorder
     Dosage: UNKNOWN

REACTIONS (8)
  - Brain oedema [Unknown]
  - Hypokalaemia [Unknown]
  - Overdose [Unknown]
  - Hyperammonaemia [Unknown]
  - Coma [Recovering/Resolving]
  - Unresponsive to stimuli [Recovering/Resolving]
  - Hyperchloraemia [Unknown]
  - Hyperglycaemia [Unknown]
